FAERS Safety Report 7201416-0 (Version None)
Quarter: 2010Q4

REPORT INFORMATION
  Report Type: 
  Country: None (occurrence: None)
  Receive Date: 20101229
  Receipt Date: 20101221
  Transmission Date: 20110411
  Serious: Yes (Hospitalization, Other)
  Sender: FDA-Public Use
  Company Number: JP-ASTELLAS-2010JP007598

PATIENT
  Age: 10 Year
  Sex: Male

DRUGS (4)
  1. PROGRAF [Suspect]
     Indication: STEM CELL TRANSPLANT
     Dosage: 7 MG, UNKNOWN/D
     Route: 065
  2. PROGRAF [Suspect]
     Dosage: 6 MG, UNKNOWN/D
     Route: 065
  3. PREDNISOLONE [Concomitant]
     Indication: STEM CELL TRANSPLANT
     Route: 065
  4. PREDNISOLONE [Concomitant]
     Dosage: 40 MG, UNKNOWN/D
     Route: 065

REACTIONS (3)
  - HAEMOLYSIS [None]
  - INFECTION [None]
  - MOYAMOYA DISEASE [None]
